FAERS Safety Report 11261347 (Version 2)
Quarter: 2015Q4

REPORT INFORMATION
  Report Type: Spontaneous
  Country: US (occurrence: US)
  Receive Date: 20150710
  Receipt Date: 20151124
  Transmission Date: 20160304
  Serious: Yes (Hospitalization, Other)
  Sender: FDA-Public Use
  Company Number: US-PFIZER INC-2015227253

PATIENT
  Age: 55 Year
  Sex: Male

DRUGS (9)
  1. TESTOSTERONE CIPIONATE [Suspect]
     Active Substance: TESTOSTERONE
     Indication: HORMONE REPLACEMENT THERAPY
     Dosage: UNK (EVERY 14 DAYS)
     Dates: start: 2003, end: 2013
  2. ANDROGEL [Suspect]
     Active Substance: TESTOSTERONE
     Indication: HORMONE REPLACEMENT THERAPY
     Dosage: UNK, DAILY (1 PACKET DAILY)
     Dates: start: 200310, end: 2010
  3. ANDRODERM [Suspect]
     Active Substance: TESTOSTERONE
     Dosage: UNK
     Dates: start: 201101, end: 201303
  4. LANTUS [Concomitant]
     Active Substance: INSULIN GLARGINE
     Indication: DIABETES MELLITUS
     Dosage: UNK
     Dates: start: 2004
  5. NOVOLOG [Concomitant]
     Active Substance: INSULIN ASPART
     Indication: DIABETES MELLITUS
     Dosage: UNK
     Dates: start: 2004
  6. INSULIN [Concomitant]
     Active Substance: INSULIN NOS
     Indication: DIABETES MELLITUS
     Dosage: UNK
     Dates: start: 2004
  7. DEPO-TESTOSTERONE [Suspect]
     Active Substance: TESTOSTERONE CYPIONATE
     Indication: HORMONE REPLACEMENT THERAPY
     Dosage: UNK
     Dates: start: 201101, end: 201303
  8. TESTIM [Suspect]
     Active Substance: TESTOSTERONE
     Indication: HORMONE REPLACEMENT THERAPY
     Dosage: UNK, DAILY (1 PACKET DAILY)
     Dates: start: 201204, end: 201210
  9. ANDRODERM [Suspect]
     Active Substance: TESTOSTERONE
     Indication: HORMONE REPLACEMENT THERAPY
     Dosage: UNK
     Dates: start: 2004, end: 2008

REACTIONS (2)
  - Cerebrovascular accident [Unknown]
  - Thrombosis [Unknown]

NARRATIVE: CASE EVENT DATE: 201307
